FAERS Safety Report 6314327-X (Version None)
Quarter: 2009Q3

REPORT INFORMATION
  Report Type: 
  Country: None (occurrence: None)
  Receive Date: 20090819
  Receipt Date: 20090810
  Transmission Date: 20100115
  Serious: Yes (Hospitalization)
  Sender: FDA-Public Use
  Company Number: US-BIOGENIDEC-2009BI025398

PATIENT
  Sex: Female

DRUGS (1)
  1. AVONEX [Suspect]
     Indication: MULTIPLE SCLEROSIS
     Route: 030
     Dates: start: 20080228

REACTIONS (4)
  - GAIT DISTURBANCE [None]
  - SKELETAL INJURY [None]
  - SURGERY [None]
  - TRANSIENT ISCHAEMIC ATTACK [None]
